FAERS Safety Report 8320456-1 (Version None)
Quarter: 2012Q2

REPORT INFORMATION
  Report Type: 
  Country: None (occurrence: None)
  Receive Date: 20120430
  Receipt Date: 20120423
  Transmission Date: 20120825
  Serious: Yes (Hospitalization)
  Sender: FDA-Public Use
  Company Number: US-BAYER-2012-039516

PATIENT
  Age: 25 Year
  Sex: Male

DRUGS (1)
  1. BETASERON [Suspect]
     Dosage: UNK
     Dates: start: 20040101

REACTIONS (1)
  - ADVERSE EVENT [None]
